FAERS Safety Report 15934989 (Version 2)
Quarter: 2019Q1

REPORT INFORMATION
  Report Type: Spontaneous
  Country: US (occurrence: US)
  Receive Date: 20190207
  Receipt Date: 20190221
  Transmission Date: 20190417
  Serious: Yes (Other)
  Sender: FDA-Public Use
  Company Number: PHEH2019US004994

PATIENT
  Sex: Female
  Weight: 18.14 kg

DRUGS (2)
  1. GILENYA [Suspect]
     Active Substance: FINGOLIMOD HYDROCHLORIDE
     Dosage: UNK, QOD
     Route: 065
     Dates: start: 2017, end: 201806
  2. GILENYA [Suspect]
     Active Substance: FINGOLIMOD HYDROCHLORIDE
     Indication: PRODUCT USED FOR UNKNOWN INDICATION
     Dosage: UNK
     Route: 065
     Dates: start: 2014

REACTIONS (8)
  - Prescribed underdose [Unknown]
  - Optic neuritis [Unknown]
  - Infection [Unknown]
  - Necrotising retinitis [Unknown]
  - Disease progression [Not Recovered/Not Resolved]
  - Lymphopenia [Unknown]
  - Facial paralysis [Unknown]
  - Nausea [Unknown]
